FAERS Safety Report 8158187-3 (Version None)
Quarter: 2012Q1

REPORT INFORMATION
  Report Type: 
  Country: None (occurrence: None)
  Receive Date: 20120222
  Receipt Date: 20120209
  Transmission Date: 20120608
  Serious: Yes (Life-Threatening, Hospitalization, Congenital Anomaly, Other)
  Sender: FDA-Public Use
  Company Number: DE-MYLANLABS-2012S1002923

PATIENT
  Age: 0 Year
  Sex: Male
  Weight: 0.87 kg

DRUGS (2)
  1. AZATHIOPRINE [Suspect]
     Dosage: 150 [MG/D ]
     Route: 064
     Dates: start: 20100705, end: 20101231
  2. PENTASA [Concomitant]
     Dosage: 0-25.4 GESTATIONAL WEEK
     Route: 064
     Dates: start: 20100705, end: 20101231

REACTIONS (14)
  - CONGENITAL INGUINAL HERNIA [None]
  - BRONCHOPULMONARY DYSPLASIA [None]
  - SUBCUTANEOUS HAEMATOMA [None]
  - ANAEMIA NEONATAL [None]
  - RESPIRATORY SYNCYTIAL VIRUS BRONCHITIS [None]
  - PATENT DUCTUS ARTERIOSUS [None]
  - NEONATAL RESPIRATORY DISTRESS SYNDROME [None]
  - PREMATURE BABY [None]
  - MATERNAL EXPOSURE DURING PREGNANCY [None]
  - BRADYCARDIA NEONATAL [None]
  - MECONIUM ILEUS [None]
  - SEPSIS [None]
  - INFANTILE APNOEIC ATTACK [None]
  - HYPERBILIRUBINAEMIA [None]
